FAERS Safety Report 10723893 (Version 1)
Quarter: 2015Q1

REPORT INFORMATION
  Report Type: Spontaneous
  Country: US (occurrence: None)
  Receive Date: 20150115
  Receipt Date: 20150115
  Transmission Date: 20150721
  Serious: Yes (Hospitalization)
  Sender: FDA-Public Use
  Company Number: HA14-473-AE

PATIENT
  Age: 80 Year
  Sex: Female
  Weight: 140.62 kg

DRUGS (5)
  1. REVATIO (SILDENAFIL CITRATE) [Concomitant]
  2. CEPH- 1 (CEFRADINE) [Concomitant]
  3. SMZ/ TMP TABLETS, USP 800 MG/ 160 MG (AMNEAL) [Suspect]
     Active Substance: SULFAMETHOXAZOLE\TRIMETHOPRIM
     Route: 048
  4. ORENITRAM [Concomitant]
     Active Substance: TREPROSTINIL
  5. CIPROFLOXACIN. [Concomitant]
     Active Substance: CIPROFLOXACIN

REACTIONS (9)
  - Hypersensitivity [None]
  - Limb injury [None]
  - Condition aggravated [None]
  - Pharyngeal oedema [None]
  - Swelling [None]
  - Pain in extremity [None]
  - Eyelid oedema [None]
  - Cellulitis [None]
  - Headache [None]

NARRATIVE: CASE EVENT DATE: 2014
